FAERS Safety Report 16457739 (Version 1)
Quarter: 2019Q2

REPORT INFORMATION
  Report Type: Spontaneous
  Country: HU (occurrence: HU)
  Receive Date: 20190620
  Receipt Date: 20190620
  Transmission Date: 20190711
  Serious: Yes (Hospitalization)
  Sender: FDA-Public Use
  Company Number: HU-MYLANLABS-2019M1056727

PATIENT
  Age: 46 Year
  Sex: Male

DRUGS (6)
  1. IRBESARTAN AND HYDROCHLOROTHIAZIDE [Concomitant]
     Active Substance: HYDROCHLOROTHIAZIDE\IRBESARTAN
     Indication: HYPERTENSION
     Dosage: 300 MG/12,5 MG
  2. CARVOL [Concomitant]
     Active Substance: CARVEDILOL
     Indication: HYPERTENSION
     Dosage: 2X1 DAILY
  3. CISORDINOL ACUTARD [Concomitant]
     Active Substance: ZUCLOPENTHIXOL ACETATE
     Indication: PSYCHOTIC SYMPTOM
     Dosage: UNK
  4. OLANZAPINE. [Suspect]
     Active Substance: OLANZAPINE
     Indication: SCHIZOPHRENIA
     Dosage: 10 MILLIGRAM
  5. TIAPRIDAL [Concomitant]
     Active Substance: TIAPRIDE HYDROCHLORIDE
     Indication: PSYCHOTIC SYMPTOM
     Dosage: UNK
  6. HALOPERIDOL. [Concomitant]
     Active Substance: HALOPERIDOL
     Indication: PSYCHOTIC SYMPTOM

REACTIONS (2)
  - Cardiometabolic syndrome [Not Recovered/Not Resolved]
  - Condition aggravated [Not Recovered/Not Resolved]
